FAERS Safety Report 7229911-9 (Version None)
Quarter: 2011Q1

REPORT INFORMATION
  Report Type: 
  Country: None (occurrence: None)
  Receive Date: 20110117
  Receipt Date: 20110107
  Transmission Date: 20110831
  Serious: No
  Sender: FDA-Public Use
  Company Number: US-ELI_LILLY_AND_COMPANY-US201011004080

PATIENT
  Age: 56 Year
  Sex: Male
  Weight: 137 kg

DRUGS (11)
  1. HUMULIN R [Suspect]
     Dosage: 0.3 ML, 3/D
     Route: 058
     Dates: start: 20100501
  2. LORATADINE [Concomitant]
  3. GABAPENTIN [Concomitant]
  4. DULOXETIME HYDROCHLORIDE [Concomitant]
  5. OMEPRAZOLE [Concomitant]
  6. LEVOTHYROXINE [Concomitant]
  7. ASPIRIN [Concomitant]
  8. LISINOPRIL [Concomitant]
  9. FUROSEMIDE [Concomitant]
  10. VARDENAFIL HYDROCHLORIDE (LEVITRA) [Concomitant]
  11. AMITRIPTYLINE [Concomitant]

REACTIONS (1)
  - SKIN ULCER [None]
